FAERS Safety Report 6065098-6 (Version None)
Quarter: 2009Q1

REPORT INFORMATION
  Report Type: 
  Country: None (occurrence: None)
  Receive Date: 20090130
  Receipt Date: 20090115
  Transmission Date: 20090719
  Serious: Yes (Hospitalization, Other)
  Sender: FDA-Public Use
  Company Number: IDA-00154

PATIENT
  Age: 20 Day
  Sex: Male

DRUGS (9)
  1. PROPRANOLOL [Suspect]
     Indication: FALLOT'S TETRALOGY
     Dosage: NASOGASTRIC TUBE FORMULATION: INJECTION/ INTRAVENOUS (NOT OTHERWISE SPECIFIED) FORMULATION: INJECTIO
     Route: 042
     Dates: start: 20081112, end: 20081113
  2. PROPRANOLOL [Suspect]
     Indication: FALLOT'S TETRALOGY
     Dosage: NASOGASTRIC TUBE FORMULATION: INJECTION/ INTRAVENOUS (NOT OTHERWISE SPECIFIED) FORMULATION: INJECTIO
     Route: 042
     Dates: start: 20081113
  3. CAFFEINE [Concomitant]
  4. RECORMON (EPOETIN BETA) (EPOETIN BETA) [Concomitant]
  5. PRIMENE (AMINO ACIDS NOS) [Concomitant]
  6. CALCIUM GLUCONATE [Concomitant]
  7. POTASSIUM CHLORIDE [Concomitant]
  8. SODIUM CHLORIDE [Concomitant]
  9. DEXTROSE 5% [Concomitant]

REACTIONS (1)
  - NECROTISING COLITIS [None]
